FAERS Safety Report 23189716 (Version 1)
Quarter: 2023Q4

REPORT INFORMATION
  Report Type: Report from Study
  Country: GB (occurrence: GB)
  Receive Date: 20231116
  Receipt Date: 20231116
  Transmission Date: 20240109
  Serious: Yes (Other)
  Sender: FDA-Public Use
  Company Number: GB-002147023-NVSC2021GB030080

PATIENT
  Sex: Male

DRUGS (2)
  1. HYRIMOZ [Suspect]
     Active Substance: ADALIMUMAB-ADAZ
     Dosage: 40 MG (FREQUENCY: EOW)
     Route: 058
     Dates: start: 20201103
  2. HYRIMOZ [Suspect]
     Active Substance: ADALIMUMAB-ADAZ
     Indication: Rheumatoid arthritis
     Dosage: 40 MG (0.8 ML (EOW))
     Route: 058
     Dates: start: 20200210

REACTIONS (4)
  - Prostatic disorder [Unknown]
  - Blood test abnormal [Recovered/Resolved]
  - Intentional dose omission [Unknown]
  - Product availability issue [Unknown]
